FAERS Safety Report 14525844 (Version 1)
Quarter: 2018Q1

REPORT INFORMATION
  Report Type: Spontaneous
  Country: US (occurrence: US)
  Receive Date: 20180213
  Receipt Date: 20180213
  Transmission Date: 20180509
  Serious: Yes (Other)
  Sender: FDA-Public Use
  Company Number: US-PFIZER INC-2018054365

PATIENT
  Age: 68 Year
  Sex: Female
  Weight: 65.77 kg

DRUGS (2)
  1. CYTOMEL [Suspect]
     Active Substance: LIOTHYRONINE SODIUM
     Indication: HYPOTHYROIDISM
     Dosage: UNK UNK, 1X/DAY (TAKES 1/4 OF A 5 MCG TABLET)
     Route: 048
     Dates: start: 2017, end: 201712
  2. SYNTHROID [Concomitant]
     Active Substance: LEVOTHYROXINE SODIUM
     Indication: HYPOTHYROIDISM
     Dosage: 0.1 UG, 1X/DAY (.05MCG TWO TABLETS ONCE A DAY BY MOUTH)
     Route: 048

REACTIONS (1)
  - Migraine [Recovering/Resolving]

NARRATIVE: CASE EVENT DATE: 2017
